FAERS Safety Report 5095919-5 (Version None)
Quarter: 2006Q3

REPORT INFORMATION
  Report Type: 
  Country: None (occurrence: None)
  Receive Date: 20060905
  Receipt Date: 20060828
  Transmission Date: 20061208
  Serious: Yes (Other)
  Sender: FDA-Public Use
  Company Number: US-JNJFOC-20060900087

PATIENT
  Sex: Female
  Weight: 53.98 kg

DRUGS (5)
  1. REMICADE [Suspect]
     Route: 042
  2. REMICADE [Suspect]
     Indication: CROHN'S DISEASE
     Route: 042
  3. AZATHIOPRINE [Concomitant]
  4. 5-ASA [Concomitant]
  5. PREDNISONE TAB [Concomitant]

REACTIONS (1)
  - JOINT LOCK [None]
